FAERS Safety Report 8069468-6 (Version None)
Quarter: 2012Q1

REPORT INFORMATION
  Report Type: 
  Country: None (occurrence: None)
  Receive Date: 20120125
  Receipt Date: 20120116
  Transmission Date: 20120608
  Serious: Yes (Hospitalization)
  Sender: FDA-Public Use
  Company Number: GB-JNJFOC-20120106168

PATIENT
  Age: 60 Year
  Sex: Female
  Weight: 92 kg

DRUGS (2)
  1. REMICADE [Suspect]
     Indication: RHEUMATOID ARTHRITIS
     Route: 042
     Dates: start: 20060515, end: 20080815
  2. STEROIDS NOS [Concomitant]
     Indication: RHEUMATOID ARTHRITIS

REACTIONS (1)
  - ATRIAL FIBRILLATION [None]
